FAERS Safety Report 9786282 (Version 1)
Quarter: 2013Q4

REPORT INFORMATION
  Report Type: Spontaneous
  Country: GB (occurrence: GB)
  Receive Date: 20131227
  Receipt Date: 20131227
  Transmission Date: 20140711
  Serious: Yes (Hospitalization)
  Sender: FDA-Public Use
  Company Number: GB-US-EMD SERONO, INC.-7259589

PATIENT
  Sex: Female

DRUGS (1)
  1. CETROTIDE (CETRORELIX ACETATE FOR INJECTION) [Suspect]
     Indication: OVARIAN HYPERSTIMULATION SYNDROME

REACTIONS (2)
  - Urticaria [Unknown]
  - Anaphylactic reaction [Unknown]
